FAERS Safety Report 16984316 (Version 2)
Quarter: 2024Q3

REPORT INFORMATION
  Report Type: Spontaneous
  Country: US (occurrence: US)
  Receive Date: 20191101
  Receipt Date: 20240906
  Transmission Date: 20241016
  Serious: No
  Sender: DOMPE FARMACEUTICI
  Company Number: US-FARMAPROD-201906-0987

PATIENT
  Age: 76 Year
  Sex: Female

DRUGS (20)
  1. OXERVATE [Suspect]
     Active Substance: CENEGERMIN-BKBJ
     Indication: Keratopathy
     Route: 047
     Dates: start: 20190606, end: 20190801
  2. OXERVATE [Suspect]
     Active Substance: CENEGERMIN-BKBJ
     Route: 047
     Dates: start: 20230605
  3. OXERVATE [Suspect]
     Active Substance: CENEGERMIN-BKBJ
  4. OXERVATE [Suspect]
     Active Substance: CENEGERMIN-BKBJ
  5. LOTEMAX [Concomitant]
     Active Substance: LOTEPREDNOL ETABONATE
     Indication: Product used for unknown indication
     Dates: start: 20181107
  6. ARTIFICIAL TEARS [Concomitant]
     Dates: start: 20181030
  7. POLYTRIM [Concomitant]
     Active Substance: POLYMYXIN B SULFATE\TRIMETHOPRIM SULFATE
     Dates: start: 20181010
  8. SYSTANE (HYPROMELLOSE 2910 (4000 MPA.S)) [Concomitant]
     Active Substance: HYPROMELLOSE 2910 (4000 MPA.S)
     Dates: start: 20190624
  9. SIMBRINZA [Concomitant]
     Active Substance: BRIMONIDINE TARTRATE\BRINZOLAMIDE
     Dosage: 1%-2% DROP SUSPENSION
  10. LATANOPROST [Concomitant]
     Active Substance: LATANOPROST
  11. PRED MILD [Concomitant]
     Active Substance: PREDNISOLONE ACETATE
  12. OFLOXACIN [Concomitant]
     Active Substance: OFLOXACIN
  13. POLYMYXIN B SUL-TRIMETHOPRIM [Concomitant]
  14. TACROLIMUS [Concomitant]
     Active Substance: TACROLIMUS
  15. TACROLIMUS [Concomitant]
     Active Substance: TACROLIMUS
  16. REPAGLINIDE [Concomitant]
     Active Substance: REPAGLINIDE
  17. PREDNISONE [Concomitant]
     Active Substance: PREDNISONE
  18. CARDIZEM [Concomitant]
     Active Substance: DILTIAZEM HYDROCHLORIDE
  19. ELIQUIS [Concomitant]
     Active Substance: APIXABAN
  20. ALLOPURINOL [Concomitant]
     Active Substance: ALLOPURINOL

REACTIONS (4)
  - Eye pain [Recovered/Resolved]
  - Ocular hyperaemia [Not Recovered/Not Resolved]
  - Weight decreased [Unknown]
  - Dyspnoea [Unknown]

NARRATIVE: CASE EVENT DATE: 20190621
